FAERS Safety Report 7769861-2 (Version None)
Quarter: 2011Q3

REPORT INFORMATION
  Report Type: 
  Country: None (occurrence: None)
  Receive Date: 20110922
  Receipt Date: 20100729
  Transmission Date: 20111222
  Serious: No
  Sender: FDA-Public Use
  Company Number: US-ASTRAZENECA-2010SE35518

PATIENT
  Age: 43 Year
  Sex: Female
  Weight: 81.6 kg

DRUGS (4)
  1. SEROQUEL XR [Suspect]
     Route: 048
     Dates: start: 20100701
  2. SEROQUEL XR [Suspect]
     Indication: SCHIZOPHRENIA
     Route: 048
  3. SEROQUEL XR [Suspect]
     Route: 048
     Dates: end: 20090801
  4. VISTARIL [Concomitant]

REACTIONS (7)
  - HALLUCINATION [None]
  - FEELING JITTERY [None]
  - WEIGHT INCREASED [None]
  - NAUSEA [None]
  - WEIGHT DECREASED [None]
  - PARANOIA [None]
  - FEELING ABNORMAL [None]
